FAERS Safety Report 8438889 (Version 5)
Quarter: 2013Q2

REPORT INFORMATION
  Report Type: Spontaneous
  Country: US (occurrence: US)
  Receive Date: 20120302
  Receipt Date: 20130530
  Transmission Date: 20140414
  Serious: Yes (Hospitalization, Other)
  Sender: FDA-Public Use
  Company Number: US-MERCK-1202USA04373

PATIENT
  Sex: Female
  Weight: 51.8 kg

DRUGS (5)
  1. FOSAMAX [Suspect]
     Indication: BONE LOSS
     Dosage: UNK UNK, QW
     Route: 048
     Dates: start: 1995, end: 200702
  2. FOSAMAX [Suspect]
     Dosage: 70 MG, UNK
     Route: 048
  3. BONIVA [Suspect]
     Indication: OSTEOPOROSIS
     Route: 048
     Dates: start: 200702, end: 201001
  4. BONIVA [Suspect]
     Indication: OSTEOPENIA
  5. FOSAMAX PLUS D [Suspect]
     Indication: BONE LOSS
     Route: 048

REACTIONS (40)
  - Intramedullary rod insertion [Unknown]
  - Breast cancer [Unknown]
  - Respiratory failure [Recovered/Resolved]
  - Large intestine perforation [Unknown]
  - Splenectomy [Unknown]
  - Mastectomy [Recovered/Resolved]
  - Cerebrovascular accident [Unknown]
  - Leukaemoid reaction [Recovering/Resolving]
  - Dehydration [Recovering/Resolving]
  - Anaemia [Unknown]
  - Female sterilisation [Unknown]
  - Hypotension [Recovering/Resolving]
  - Laparotomy [Unknown]
  - Colostomy [Unknown]
  - Sepsis [Recovering/Resolving]
  - Femur fracture [Unknown]
  - Anxiety [Unknown]
  - Emphysema [Unknown]
  - Fall [Unknown]
  - Supraventricular tachycardia [Unknown]
  - Chronic obstructive pulmonary disease [Not Recovered/Not Resolved]
  - Tricuspid valve incompetence [Unknown]
  - Hypertension [Unknown]
  - Hypothyroidism [Unknown]
  - Pleural effusion [Recovering/Resolving]
  - Low turnover osteopathy [Unknown]
  - Hyperlipidaemia [Unknown]
  - Bronchitis [Unknown]
  - Scar [Unknown]
  - Pulmonary mass [Unknown]
  - Adrenal mass [Unknown]
  - Induration [Unknown]
  - Depression [Unknown]
  - Incision site pain [Unknown]
  - Incision site oedema [Unknown]
  - Abscess [Unknown]
  - Postoperative ileus [Unknown]
  - Back pain [Unknown]
  - Oesophageal stenosis [Unknown]
  - Tongue ulceration [Recovered/Resolved]
